FAERS Safety Report 9755269 (Version 1)
Quarter: 2013Q4

REPORT INFORMATION
  Report Type: Spontaneous
  Country: US (occurrence: US)
  Receive Date: 20131213
  Receipt Date: 20131213
  Transmission Date: 20140711
  Serious: No
  Sender: FDA-Public Use
  Company Number: US-GLAXOSMITHKLINE-A1015092A

PATIENT
  Age: 77 Year
  Sex: Male

DRUGS (12)
  1. NICODERM CQ CLEAR 21MG [Suspect]
     Indication: EX-TOBACCO USER
     Dates: start: 20130305
  2. ASPIRIN [Concomitant]
  3. XANAX [Concomitant]
  4. POTASSIUM CL [Concomitant]
  5. FOLIC ACID [Concomitant]
  6. LASIX [Concomitant]
  7. TEMAZEPAM [Concomitant]
  8. OMEPRAZOLE [Concomitant]
  9. ATENOLOL [Concomitant]
  10. LISINOPRIL [Concomitant]
  11. CRANBERRY [Concomitant]
  12. TYLENOL WITH CODEINE [Concomitant]

REACTIONS (3)
  - Abnormal dreams [Not Recovered/Not Resolved]
  - Insomnia [Not Recovered/Not Resolved]
  - Hallucination [Not Recovered/Not Resolved]
